FAERS Safety Report 10967639 (Version 1)
Quarter: 2015Q1

REPORT INFORMATION
  Report Type: Spontaneous
  Country: US (occurrence: US)
  Receive Date: 20150330
  Receipt Date: 20150330
  Transmission Date: 20150721
  Serious: No
  Sender: FDA-Public Use
  Company Number: US-ASTRAZENECA-2006UW15933

PATIENT
  Age: 78 Year
  Sex: Female
  Weight: 76.7 kg

DRUGS (21)
  1. NOLVADEX [Suspect]
     Active Substance: TAMOXIFEN CITRATE
     Indication: NEOPLASM MALIGNANT
     Route: 048
     Dates: start: 2001
  2. LIPITOR [Concomitant]
     Active Substance: ATORVASTATIN CALCIUM
  3. MYLANTA [Concomitant]
     Active Substance: ALUMINUM HYDROXIDE\MAGNESIUM HYDROXIDE\SIMETHICONE
     Dosage: ONE SWALLOW BEFORE BEDTIME
  4. NEXIUM [Suspect]
     Active Substance: ESOMEPRAZOLE MAGNESIUM
     Indication: DYSPEPSIA
     Route: 048
     Dates: start: 2003
  5. CLORAZEPATE [Concomitant]
     Active Substance: CLORAZEPATE DIPOTASSIUM
  6. ZYRTEC [Concomitant]
     Active Substance: CETIRIZINE HYDROCHLORIDE
  7. TYLENOL [Concomitant]
     Active Substance: ACETAMINOPHEN
     Indication: ARTHRITIS
  8. HYDRACEL [Concomitant]
  9. ACULAR [Concomitant]
     Active Substance: KETOROLAC TROMETHAMINE
  10. NOLVADEX [Suspect]
     Active Substance: TAMOXIFEN CITRATE
     Indication: NEOPLASM MALIGNANT
     Route: 048
     Dates: start: 1993, end: 1998
  11. ZELNORM [Concomitant]
     Active Substance: TEGASEROD MALEATE
  12. AMITIZA [Concomitant]
     Active Substance: LUBIPROSTONE
  13. POTASSIUM [Concomitant]
     Active Substance: POTASSIUM
  14. NEXIUM [Suspect]
     Active Substance: ESOMEPRAZOLE MAGNESIUM
     Indication: DYSPEPSIA
     Route: 048
  15. FISH OIL [Concomitant]
     Active Substance: FISH OIL
  16. NEXIUM [Suspect]
     Active Substance: ESOMEPRAZOLE MAGNESIUM
     Indication: GASTROOESOPHAGEAL REFLUX DISEASE
     Route: 048
  17. NEXIUM [Suspect]
     Active Substance: ESOMEPRAZOLE MAGNESIUM
     Indication: GASTROOESOPHAGEAL REFLUX DISEASE
     Route: 048
     Dates: start: 2003
  18. ASMANEX [Concomitant]
     Active Substance: MOMETASONE FUROATE
  19. SENEKOT [Concomitant]
     Indication: CONSTIPATION
  20. FUROSEMIDE. [Concomitant]
     Active Substance: FUROSEMIDE
  21. ESTRACE [Concomitant]
     Active Substance: ESTRADIOL

REACTIONS (11)
  - Vaginal haemorrhage [Unknown]
  - Off label use [Unknown]
  - Dyspepsia [Unknown]
  - Weight increased [Unknown]
  - Hypertension [Unknown]
  - Salivary hypersecretion [Unknown]
  - Fatigue [Not Recovered/Not Resolved]
  - Dry eye [Unknown]
  - Vitamin B12 deficiency [Unknown]
  - Drug ineffective [Unknown]
  - Dry skin [Unknown]

NARRATIVE: CASE EVENT DATE: 1995
